FAERS Safety Report 9336432 (Version 1)
Quarter: 2013Q2

REPORT INFORMATION
  Report Type: Report from Study
  Country: US (occurrence: US)
  Receive Date: 20130607
  Receipt Date: 20130607
  Transmission Date: 20140414
  Serious: Yes (Other)
  Sender: FDA-Public Use
  Company Number: US-MYLANLABS-2013S1010315

PATIENT
  Age: 37 Year
  Sex: Female
  Weight: 61.24 kg

DRUGS (1)
  1. AMNESTEEM CAPSULES [Suspect]
     Indication: ACNE
     Route: 048
     Dates: start: 20130404, end: 20130502

REACTIONS (4)
  - Lower limb fracture [Not Recovered/Not Resolved]
  - Impaired healing [Not Recovered/Not Resolved]
  - Mood swings [Not Recovered/Not Resolved]
  - Wound [Not Recovered/Not Resolved]
